FAERS Safety Report 16005099 (Version 1)
Quarter: 2019Q1

REPORT INFORMATION
  Report Type: Spontaneous
  Country: US (occurrence: US)
  Receive Date: 20190226
  Receipt Date: 20190226
  Transmission Date: 20190418
  Serious: Yes (Other)
  Sender: FDA-Public Use
  Company Number: US-GLAXOSMITHKLINE-US2019031642

PATIENT
  Age: 37 Year
  Sex: Female

DRUGS (1)
  1. NUCALA [Suspect]
     Active Substance: MEPOLIZUMAB
     Indication: ASTHMA
     Dosage: UNK, ONCE MONTHLY
     Route: 065
     Dates: start: 201708

REACTIONS (4)
  - Visual impairment [Not Recovered/Not Resolved]
  - Retinal exudates [Not Recovered/Not Resolved]
  - Migraine [Not Recovered/Not Resolved]
  - Retinal ischaemia [Not Recovered/Not Resolved]

NARRATIVE: CASE EVENT DATE: 20190219
